FAERS Safety Report 10169231 (Version 2)
Quarter: 2014Q3

REPORT INFORMATION
  Report Type: Spontaneous
  Country: US (occurrence: US)
  Receive Date: 20140513
  Receipt Date: 20140825
  Transmission Date: 20150326
  Serious: Yes (Hospitalization)
  Sender: FDA-Public Use
  Company Number: US-JNJFOC-20140502923

PATIENT
  Age: 63 Year
  Sex: Female

DRUGS (5)
  1. TINDAMAX [Concomitant]
     Active Substance: TINIDAZOLE
     Indication: INFECTION PARASITIC
     Route: 048
  2. VERMOX [Suspect]
     Active Substance: MEBENDAZOLE
     Indication: PRODUCT USED FOR UNKNOWN INDICATION
     Route: 065
  3. ALINIA [Concomitant]
     Active Substance: NITAZOXANIDE
     Indication: INFECTION PARASITIC
     Route: 048
  4. ZITHROMAX [Concomitant]
     Active Substance: AZITHROMYCIN DIHYDRATE
     Indication: PNEUMONIA
     Dosage: ONCE OR TWICE A MONTH
     Route: 048
     Dates: start: 2012
  5. NEXIUM [Concomitant]
     Active Substance: ESOMEPRAZOLE MAGNESIUM
     Indication: GASTROOESOPHAGEAL REFLUX DISEASE
     Route: 048
     Dates: start: 2014

REACTIONS (3)
  - Vomiting [Recovered/Resolved]
  - Abnormal loss of weight [Not Recovered/Not Resolved]
  - Hospitalisation [Unknown]

NARRATIVE: CASE EVENT DATE: 20140427
